FAERS Safety Report 9598061 (Version 1)
Quarter: 2013Q4

REPORT INFORMATION
  Report Type: Spontaneous
  Country: US (occurrence: US)
  Receive Date: 20131004
  Receipt Date: 20131004
  Transmission Date: 20140711
  Serious: No
  Sender: FDA-Public Use
  Company Number: US-AMGEN-USASP2013022536

PATIENT
  Age: 42 Year
  Sex: Female
  Weight: 113.4 kg

DRUGS (1)
  1. ENBREL [Suspect]
     Indication: RHEUMATOID ARTHRITIS
     Dosage: 50 MG, QWK
     Route: 058
     Dates: start: 20121019

REACTIONS (6)
  - Oropharyngeal pain [Unknown]
  - Dry throat [Unknown]
  - Rhinorrhoea [Unknown]
  - Pyrexia [Unknown]
  - Local swelling [Unknown]
  - Joint swelling [Unknown]
